FAERS Safety Report 8721924 (Version 2)
Quarter: 2013Q1

REPORT INFORMATION
  Report Type: Spontaneous
  Country: JP (occurrence: JP)
  Receive Date: 20120814
  Receipt Date: 20130307
  Transmission Date: 20140127
  Serious: Yes (Other)
  Sender: FDA-Public Use
  Company Number: PHHY2012JP033354

PATIENT
  Age: 79 Year
  Sex: Female

DRUGS (2)
  1. AFINITOR [Suspect]
     Indication: METASTATIC RENAL CELL CARCINOMA
     Route: 048
     Dates: start: 20100510, end: 20100705
  2. AFINITOR [Suspect]
     Dosage: UNK
     Dates: start: 20110829

REACTIONS (5)
  - Urticaria [Unknown]
  - Oedema [Unknown]
  - Blister [Unknown]
  - Metastatic renal cell carcinoma [Unknown]
  - Malignant neoplasm progression [Unknown]
